FAERS Safety Report 7380426-7 (Version None)
Quarter: 2011Q1

REPORT INFORMATION
  Report Type: 
  Country: None (occurrence: None)
  Receive Date: 20110324
  Receipt Date: 20110324
  Transmission Date: 20110831
  Serious: Yes (Other)
  Sender: FDA-Public Use
  Company Number: None

PATIENT
  Sex: Female
  Weight: 61.6892 kg

DRUGS (1)
  1. BYSTOLIC [Suspect]
     Indication: HYPERTENSION
     Dosage: 5MG DAILY PO
     Route: 048
     Dates: start: 20101112, end: 20110308

REACTIONS (6)
  - PRURITUS [None]
  - POLLAKIURIA [None]
  - JOINT SWELLING [None]
  - RASH [None]
  - OEDEMA PERIPHERAL [None]
  - BLISTER [None]
